FAERS Safety Report 7276392-5 (Version None)
Quarter: 2011Q1

REPORT INFORMATION
  Report Type: 
  Country: None (occurrence: None)
  Receive Date: 20110204
  Receipt Date: 20110126
  Transmission Date: 20110831
  Serious: Yes (Hospitalization, Other)
  Sender: FDA-Public Use
  Company Number: US-PFIZER INC-US-WYE-H06089108

PATIENT
  Sex: Female

DRUGS (2)
  1. EFFEXOR XR [Suspect]
     Dosage: 150 MG, 1X/DAY
     Route: 048
     Dates: start: 20010101, end: 20080101
  2. EFFEXOR XR [Suspect]
     Dosage: STARTED TAPERING
     Route: 048
     Dates: start: 20080101

REACTIONS (6)
  - TRANSIENT ISCHAEMIC ATTACK [None]
  - FEELING ABNORMAL [None]
  - SYNCOPE [None]
  - DIZZINESS [None]
  - HYPOAESTHESIA FACIAL [None]
  - DRUG WITHDRAWAL SYNDROME [None]
